FAERS Safety Report 12558396 (Version 1)
Quarter: 2016Q3

REPORT INFORMATION
  Report Type: Spontaneous
  Country: US (occurrence: US)
  Receive Date: 20160714
  Receipt Date: 20160714
  Transmission Date: 20161109
  Serious: No
  Sender: FDA-Public Use
  Company Number: US-TEVA-673443USA

PATIENT
  Age: 51 Year
  Sex: Female
  Weight: 63.56 kg

DRUGS (11)
  1. PROVIGIL [Suspect]
     Active Substance: MODAFINIL
     Indication: HYPERSOMNIA
  2. PROVIGIL [Suspect]
     Active Substance: MODAFINIL
     Indication: OSTEOPOROSIS
  3. NUVIGIL [Suspect]
     Active Substance: ARMODAFINIL
     Indication: SOMNOLENCE
     Dates: start: 2012, end: 2016
  4. PROVIGIL [Suspect]
     Active Substance: MODAFINIL
     Indication: ASTHMA
  5. PROVIGIL [Suspect]
     Active Substance: MODAFINIL
     Indication: SJOGREN^S SYNDROME
  6. PROVIGIL [Suspect]
     Active Substance: MODAFINIL
     Indication: SYSTEMIC LUPUS ERYTHEMATOSUS
  7. PROVIGIL [Suspect]
     Active Substance: MODAFINIL
     Indication: RAYNAUD^S PHENOMENON
  8. PROVIGIL [Suspect]
     Active Substance: MODAFINIL
     Indication: SOMNOLENCE
     Dates: start: 20160520
  9. PROVIGIL [Suspect]
     Active Substance: MODAFINIL
     Indication: FIBROMYALGIA
  10. PROVIGIL [Suspect]
     Active Substance: MODAFINIL
     Indication: CHRONIC FATIGUE SYNDROME
  11. PROVIGIL [Suspect]
     Active Substance: MODAFINIL
     Indication: INTERVERTEBRAL DISC DEGENERATION

REACTIONS (3)
  - Therapeutic response unexpected [Unknown]
  - Headache [Unknown]
  - Off label use [Unknown]

NARRATIVE: CASE EVENT DATE: 20160520
